FAERS Safety Report 17652715 (Version 2)
Quarter: 2020Q2

REPORT INFORMATION
  Report Type: Spontaneous
  Country: RU (occurrence: RU)
  Receive Date: 20200409
  Receipt Date: 20200417
  Transmission Date: 20200713
  Serious: Yes (Other)
  Sender: FDA-Public Use
  Company Number: RU-ASTRAZENECA-2020SE48758

PATIENT
  Age: 53 Year
  Sex: Male

DRUGS (7)
  1. BUDESONIDE + FORMOTEROL [Suspect]
     Active Substance: BUDESONIDE\FORMOTEROL
     Indication: PNEUMONIA
     Route: 055
  2. LINEZOLID. [Concomitant]
     Active Substance: LINEZOLID
     Route: 042
  3. FLUCONAZOLE. [Concomitant]
     Active Substance: FLUCONAZOLE
     Route: 042
  4. TIGECYCLINE. [Concomitant]
     Active Substance: TIGECYCLINE
     Route: 042
  5. CLARITHROMYCIN. [Concomitant]
     Active Substance: CLARITHROMYCIN
     Route: 042
  6. MOXIFLOXACIN. [Concomitant]
     Active Substance: MOXIFLOXACIN
     Dosage: 0.4G UNKNOWN
     Route: 042
  7. ERTAPENEM. [Concomitant]
     Active Substance: ERTAPENEM SODIUM
     Dosage: 1.0 G IV
     Route: 042

REACTIONS (9)
  - Poisoning [Unknown]
  - Inflammation [Unknown]
  - Off label use [Unknown]
  - Red blood cell sedimentation rate increased [Unknown]
  - Thrombocytosis [Unknown]
  - X-ray [Unknown]
  - Pyrexia [Unknown]
  - Anaemia [Unknown]
  - General physical health deterioration [Unknown]
